FAERS Safety Report 5451536-6 (Version None)
Quarter: 2007Q3

REPORT INFORMATION
  Report Type: 
  Country: None (occurrence: None)
  Receive Date: 20070913
  Receipt Date: 20070903
  Transmission Date: 20080115
  Serious: No
  Sender: FDA-Public Use
  Company Number: IE-ABBOTT-07P-229-0364085-00

PATIENT
  Age: 57 Year
  Sex: Male

DRUGS (4)
  1. KLACID FORTE [Suspect]
     Indication: HELICOBACTER INFECTION
     Route: 048
  2. ESOMEPRAZOLE MAGNESIUM [Concomitant]
     Indication: HELICOBACTER INFECTION
     Route: 048
  3. ESOMEPRAZOLE MAGNESIUM [Concomitant]
     Route: 048
  4. AMOXICILLIN TRIHYDRATE [Concomitant]
     Indication: HELICOBACTER INFECTION
     Route: 048

REACTIONS (7)
  - ABDOMINAL PAIN [None]
  - ABDOMINAL PAIN UPPER [None]
  - DIARRHOEA [None]
  - HEADACHE [None]
  - IMPAIRED WORK ABILITY [None]
  - NAUSEA [None]
  - PHARYNGOLARYNGEAL PAIN [None]
